FAERS Safety Report 24021987 (Version 1)
Quarter: 2024Q2

REPORT INFORMATION
  Report Type: Report from Study
  Country: DE (occurrence: DE)
  Receive Date: 20240627
  Receipt Date: 20240627
  Transmission Date: 20240715
  Serious: Yes (Other)
  Sender: FDA-Public Use
  Company Number: DE-JNJFOC-20171026904

PATIENT
  Age: 16 Year
  Sex: Female

DRUGS (5)
  1. REMICADE [Suspect]
     Active Substance: INFLIXIMAB
     Indication: Colitis ulcerative
     Route: 041
     Dates: start: 20170117, end: 20171013
  2. REMICADE [Suspect]
     Active Substance: INFLIXIMAB
     Route: 041
     Dates: start: 20171204, end: 20180919
  3. REMICADE [Suspect]
     Active Substance: INFLIXIMAB
     Route: 041
     Dates: start: 20181102, end: 20190327
  4. REMICADE [Suspect]
     Active Substance: INFLIXIMAB
     Route: 041
     Dates: start: 20170424, end: 20171013
  5. REMICADE [Suspect]
     Active Substance: INFLIXIMAB
     Route: 041
     Dates: start: 20170117, end: 20170301

REACTIONS (4)
  - Colitis ulcerative [Recovered/Resolved]
  - Pneumococcal infection [Recovered/Resolved]
  - Alopecia [Recovered/Resolved]
  - Venous thrombosis [Recovered/Resolved]

NARRATIVE: CASE EVENT DATE: 20171005
